FAERS Safety Report 24978374 (Version 3)
Quarter: 2025Q1

REPORT INFORMATION
  Report Type: Report from Study
  Country: US (occurrence: US)
  Receive Date: 20250217
  Receipt Date: 20250311
  Transmission Date: 20250408
  Serious: Yes (Hospitalization, Other)
  Sender: ABBVIE
  Company Number: US-ABBVIE-6134526

PATIENT
  Age: 69 Year
  Sex: Male

DRUGS (1)
  1. SKYRIZI [Suspect]
     Active Substance: RISANKIZUMAB-RZAA
     Indication: Crohn^s disease
     Route: 058
     Dates: start: 20240917

REACTIONS (8)
  - Stoma site haemorrhage [Recovered/Resolved]
  - Haematochezia [Recovering/Resolving]
  - Colectomy [Unknown]
  - Crohn^s disease [Unknown]
  - Gastric ulcer [Recovered/Resolved]
  - Ulcer haemorrhage [Recovering/Resolving]
  - Dizziness postural [Recovered/Resolved]
  - Hypotension [Recovered/Resolved]

NARRATIVE: CASE EVENT DATE: 20250209
